FAERS Safety Report 18520022 (Version 2)
Quarter: 2020Q4

REPORT INFORMATION
  Report Type: Spontaneous
  Country: US (occurrence: US)
  Receive Date: 20201118
  Receipt Date: 20201229
  Transmission Date: 20210114
  Serious: Yes (Other)
  Sender: FDA-Public Use
  Company Number: US-BEH-2020124860

PATIENT
  Age: 49 Year
  Sex: Female

DRUGS (5)
  1. HAEGARDA [Suspect]
     Active Substance: HUMAN C1-ESTERASE INHIBITOR
     Indication: HEREDITARY ANGIOEDEMA
     Dosage: 2000 INTERNATIONAL UNIT, BIW
     Route: 058
     Dates: start: 20200309
  2. HAEGARDA [Suspect]
     Active Substance: HUMAN C1-ESTERASE INHIBITOR
     Indication: PROPHYLAXIS
     Dosage: 5000 INTERNATIONAL UNITS, TWICE A WEEK
     Route: 058
     Dates: start: 20200310
  3. FIRAZYR [Concomitant]
     Active Substance: ICATIBANT ACETATE
  4. HAEGARDA [Suspect]
     Active Substance: HUMAN C1-ESTERASE INHIBITOR
     Indication: HEREDITARY ANGIOEDEMA
     Dosage: 3000 INTERNATIONAL UNIT, BIW
     Route: 058
     Dates: start: 20200309
  5. HAEGARDA [Suspect]
     Active Substance: HUMAN C1-ESTERASE INHIBITOR
     Indication: PROPHYLAXIS

REACTIONS (8)
  - Hereditary angioedema [Unknown]
  - Eye operation [Unknown]
  - Eye swelling [Unknown]
  - Lens disorder [Unknown]
  - Fractured coccyx [Unknown]
  - Circumstance or information capable of leading to medication error [Unknown]
  - Eye pruritus [Unknown]
  - No adverse event [Unknown]

NARRATIVE: CASE EVENT DATE: 20201119
